FAERS Safety Report 15227188 (Version 1)
Quarter: 2018Q4

REPORT INFORMATION
  Report Type: Report from Study
  Country: ES (occurrence: ES)
  Receive Date: 20180801
  Receipt Date: 20180801
  Transmission Date: 20190204
  Serious: Yes (Hospitalization)
  Sender: FDA-Public Use
  Company Number: ES-TEVA-2018-ES-932828

PATIENT
  Age: 5 Year
  Sex: Female
  Weight: 17 kg

DRUGS (9)
  1. MESNA (1078A) [Concomitant]
     Active Substance: MESNA
     Indication: PROPHYLAXIS
     Dosage: 140 MILLIGRAM DAILY;
     Route: 042
     Dates: start: 20170418, end: 20170418
  2. SEPTRIN PEDIATRICO 8 MG/40 MG/ML SUSPENSION ORAL , 1 FRASCO DE 100 ML [Concomitant]
     Active Substance: SULFAMETHOXAZOLE\TRIMETHOPRIM
     Indication: PROPHYLAXIS
     Dosage: 4.5 ML DAILY;
     Route: 048
     Dates: start: 20161031
  3. CICLOFOSFAMIDA (120A) [Suspect]
     Active Substance: CYCLOPHOSPHAMIDE
     Indication: ACUTE LYMPHOCYTIC LEUKAEMIA
     Dosage: 350 MILLIGRAM DAILY;
     Route: 042
     Dates: start: 20170418, end: 20170418
  4. ONCASPAR [Suspect]
     Active Substance: PEGASPARGASE
     Indication: ACUTE LYMPHOCYTIC LEUKAEMIA
     Route: 030
     Dates: start: 20170404, end: 20170418
  5. VINCRISTINA SULFATO (809SU) [Suspect]
     Active Substance: VINCRISTINE SULFATE
     Indication: ACUTE LYMPHOCYTIC LEUKAEMIA
     Route: 042
     Dates: start: 20170404, end: 20170411
  6. DOXORUBICINA (202A) [Suspect]
     Active Substance: DOXORUBICIN HYDROCHLORIDE
     Indication: ACUTE LYMPHOCYTIC LEUKAEMIA
     Route: 042
     Dates: start: 20170404, end: 20170411
  7. AZITROMICINA (7019A) [Concomitant]
     Active Substance: AZITHROMYCIN
     Indication: PROPHYLAXIS
     Route: 048
     Dates: start: 20170315
  8. FORTECORTIN 4 MG COMPRIMIDOS, 30 COMPRIMIDOS [Suspect]
     Active Substance: DEXAMETHASONE
     Indication: ACUTE LYMPHOCYTIC LEUKAEMIA
     Route: 048
     Dates: start: 20170404, end: 20170424
  9. ACICLOVIR (201A) [Concomitant]
     Active Substance: ACYCLOVIR
     Indication: PROPHYLAXIS
     Route: 048
     Dates: start: 20161128

REACTIONS (2)
  - Rhinovirus infection [Recovered/Resolved]
  - Pancytopenia [Recovered/Resolved]

NARRATIVE: CASE EVENT DATE: 20170421
